FAERS Safety Report 15707170 (Version 4)
Quarter: 2018Q4

REPORT INFORMATION
  Report Type: Spontaneous
  Country: IN (occurrence: IN)
  Receive Date: 20181210
  Receipt Date: 20181225
  Transmission Date: 20190205
  Serious: Yes (Life-Threatening, Hospitalization, Other)
  Sender: FDA-Public Use
  Company Number: PHHY2018IN177741

PATIENT
  Age: 45 Year
  Sex: Male

DRUGS (2)
  1. AZATHIOPRINE. [Suspect]
     Active Substance: AZATHIOPRINE
     Indication: CROHN^S DISEASE
     Dosage: 100 MG, QD
     Route: 048
     Dates: start: 201712, end: 201801
  2. PREDNISOLONE. [Suspect]
     Active Substance: PREDNISOLONE
     Indication: CROHN^S DISEASE
     Dosage: 50 MG, QD
     Route: 048
     Dates: start: 201712, end: 201801

REACTIONS (9)
  - Lymphadenopathy [Recovering/Resolving]
  - Histoplasmosis disseminated [Recovering/Resolving]
  - Gastrointestinal wall thickening [Unknown]
  - Myopathy [Unknown]
  - Off label use [Unknown]
  - Pyrexia [Recovering/Resolving]
  - Anal ulcer [Recovering/Resolving]
  - Rectal haemorrhage [Recovering/Resolving]
  - Hyperadrenalism [Unknown]
